FAERS Safety Report 7166251-0 (Version None)
Quarter: 2010Q4

REPORT INFORMATION
  Report Type: 
  Country: None (occurrence: None)
  Receive Date: 20101201
  Receipt Date: 20101119
  Transmission Date: 20110411
  Serious: Yes (Death)
  Sender: FDA-Public Use
  Company Number: 021449

PATIENT
  Age: 44 Year
  Sex: Male

DRUGS (19)
  1. KEPPRA [Suspect]
  2. CAFFEINE [Suspect]
  3. ATARAX [Concomitant]
  4. LORTAB [Concomitant]
  5. AMITRIPTYLINE [Concomitant]
  6. LAMOTRIGINE [Concomitant]
  7. FENTANYL-100 [Concomitant]
  8. PHENOBARBITAL [Concomitant]
  9. CITALOPRAM [Concomitant]
  10. ELAVIL [Concomitant]
  11. COMBIVENT [Concomitant]
  12. LAMICTAL [Concomitant]
  13. RELAFEN [Concomitant]
  14. FLONASE [Concomitant]
  15. PRAVACHOL [Concomitant]
  16. LEXAPRO [Concomitant]
  17. PROTONIX [Concomitant]
  18. NITROGLYCERIN [Concomitant]
  19. FOSAMAX [Concomitant]

REACTIONS (3)
  - ARRHYTHMIA [None]
  - DRUG TOXICITY [None]
  - UNRESPONSIVE TO STIMULI [None]
